FAERS Safety Report 13726704 (Version 2)
Quarter: 2017Q3

REPORT INFORMATION
  Report Type: Spontaneous
  Country: IT (occurrence: IT)
  Receive Date: 20170707
  Receipt Date: 20170714
  Transmission Date: 20171127
  Serious: Yes (Other)
  Sender: FDA-Public Use
  Company Number: IT-JNJFOC-20170702366

PATIENT
  Age: 46 Year
  Sex: Male

DRUGS (1)
  1. HALDOL DECANOAS [Suspect]
     Active Substance: HALOPERIDOL DECANOATE
     Indication: SCHIZOPHRENIA
     Route: 030
     Dates: start: 2003, end: 20170624

REACTIONS (3)
  - Delirium [Recovering/Resolving]
  - Hallucination [Recovering/Resolving]
  - Drug ineffective [Recovering/Resolving]

NARRATIVE: CASE EVENT DATE: 20161230
